FAERS Safety Report 22105602 (Version 1)
Quarter: 2023Q1

REPORT INFORMATION
  Report Type: Spontaneous
  Country: US (occurrence: US)
  Receive Date: 20230317
  Receipt Date: 20230317
  Transmission Date: 20230418
  Serious: No
  Sender: FDA-Public Use
  Company Number: US-Accord-293381

PATIENT
  Sex: Female

DRUGS (1)
  1. FULVESTRANT [Suspect]
     Active Substance: FULVESTRANT
     Indication: Breast cancer
     Dosage: 500 MG (5ML EACH BUTTOCK) MONTHLY
     Route: 030
     Dates: start: 202204

REACTIONS (2)
  - Musculoskeletal pain [Unknown]
  - Pain [Unknown]
